FAERS Safety Report 11845711 (Version 1)
Quarter: 2015Q4

REPORT INFORMATION
  Report Type: Spontaneous
  Country: CN (occurrence: CN)
  Receive Date: 20151217
  Receipt Date: 20151217
  Transmission Date: 20160305
  Serious: Yes (Other)
  Sender: FDA-Public Use
  Company Number: CN-MYLANLABS-2015M1045154

PATIENT

DRUGS (3)
  1. PIRARUBICIN [Suspect]
     Active Substance: PIRARUBICIN
     Indication: PERIPHERAL NERVE SHEATH TUMOUR MALIGNANT
     Dosage: 2 COURSES
     Route: 065
  2. CARBOPLATIN. [Suspect]
     Active Substance: CARBOPLATIN
     Indication: PERIPHERAL NERVE SHEATH TUMOUR MALIGNANT
     Dosage: 2 COURSES
     Route: 065
  3. IFOSFAMIDE. [Suspect]
     Active Substance: IFOSFAMIDE
     Indication: PERIPHERAL NERVE SHEATH TUMOUR MALIGNANT
     Dosage: 2 COURSES
     Route: 065

REACTIONS (2)
  - Osteoporosis [Unknown]
  - Granulocytopenia [Unknown]
